FAERS Safety Report 9753884 (Version 2)
Quarter: 2013Q4

REPORT INFORMATION
  Report Type: Spontaneous
  Country: US (occurrence: US)
  Receive Date: 20131213
  Receipt Date: 20131213
  Transmission Date: 20140711
  Serious: No
  Sender: FDA-Public Use
  Company Number: US-GILEAD-2010-0027818

PATIENT
  Sex: Female

DRUGS (21)
  1. LETAIRIS [Suspect]
     Indication: PULMONARY ARTERIAL HYPERTENSION
     Route: 048
     Dates: start: 20100113
  2. LASIX [Concomitant]
  3. SALSALATE [Concomitant]
  4. SYNTHROID [Concomitant]
  5. NORVASC [Concomitant]
  6. PLAQUENIL [Concomitant]
  7. ARICEPT [Concomitant]
  8. LABETALOL [Concomitant]
  9. PREDNISONE [Concomitant]
  10. COENZYME Q10 [Concomitant]
  11. ACTONEL [Concomitant]
  12. GINKOBA [Concomitant]
  13. FERROUS GLUCONATE [Concomitant]
  14. SANCTURA [Concomitant]
  15. PILOCARPUS [Concomitant]
  16. NEURONTIN [Concomitant]
  17. VITAMIN C [Concomitant]
  18. VITAMIN E [Concomitant]
  19. VITAMIN B [Concomitant]
  20. ASPIRIN [Concomitant]
  21. VICODIN ES [Concomitant]

REACTIONS (3)
  - Cellulitis [Recovering/Resolving]
  - Rash [Recovering/Resolving]
  - Local swelling [Recovering/Resolving]
